FAERS Safety Report 9260378 (Version 1)
Quarter: 2013Q2

REPORT INFORMATION
  Report Type: Spontaneous
  Country: ZA (occurrence: ZA)
  Receive Date: 20130429
  Receipt Date: 20130429
  Transmission Date: 20140414
  Serious: Yes (Other)
  Sender: FDA-Public Use
  Company Number: ZA-COVIDIEN/TYCO HEALTHCARE/MALLINCKRODT-T201301786

PATIENT
  Sex: Female

DRUGS (6)
  1. EXALGO EXTENDED RELEASE [Suspect]
     Indication: BACK PAIN
     Dosage: 4 MG, UNK
     Route: 048
  2. EXALGO EXTENDED RELEASE [Suspect]
     Dosage: 8 MG, UNK
     Route: 048
  3. CILIFT [Suspect]
     Indication: PRODUCT USED FOR UNKNOWN INDICATION
     Dosage: TABLET
     Route: 048
  4. PREXUM PLUS [Suspect]
     Indication: HYPERTENSION
     Dosage: UNK
     Route: 048
  5. CARLOC [Suspect]
     Indication: HYPERTENSION
     Dosage: UNK
     Route: 048
  6. CELEBREX [Concomitant]

REACTIONS (6)
  - Drug interaction [Unknown]
  - Retrograde amnesia [Not Recovered/Not Resolved]
  - Blood pressure decreased [Recovered/Resolved]
  - Confusional state [Unknown]
  - Malaise [Unknown]
  - Drug ineffective [Unknown]
